FAERS Safety Report 11535565 (Version 1)
Quarter: 2015Q3

REPORT INFORMATION
  Report Type: Report from Study
  Country: US (occurrence: US)
  Receive Date: 20150922
  Receipt Date: 20150922
  Transmission Date: 20151125
  Serious: Yes (Death)
  Sender: FDA-Public Use
  Company Number: US-BIOGENIDEC-2015BI127540

PATIENT
  Age: 71 Year
  Sex: Female

DRUGS (10)
  1. TECFIDERA [Suspect]
     Active Substance: DIMETHYL FUMARATE
     Indication: MULTIPLE SCLEROSIS
     Route: 048
     Dates: start: 20140208
  2. RALOXIFENE. [Concomitant]
     Active Substance: RALOXIFENE
  3. AMPYRA [Concomitant]
     Active Substance: DALFAMPRIDINE
  4. EXELON [Concomitant]
     Active Substance: RIVASTIGMINE TARTRATE
  5. LEVEMIR [Concomitant]
     Active Substance: INSULIN DETEMIR
  6. TOLTERODINE [Concomitant]
     Active Substance: TOLTERODINE
  7. CRESTOR [Concomitant]
     Active Substance: ROSUVASTATIN CALCIUM
  8. VENLAFAXINE [Concomitant]
     Active Substance: VENLAFAXINE HYDROCHLORIDE
  9. NOVOLOG [Concomitant]
     Active Substance: INSULIN ASPART
  10. ONGLYZA [Concomitant]
     Active Substance: SAXAGLIPTIN HYDROCHLORIDE

REACTIONS (1)
  - Death [Fatal]

NARRATIVE: CASE EVENT DATE: 20150917
